FAERS Safety Report 4276203-6 (Version None)
Quarter: 2004Q1

REPORT INFORMATION
  Report Type: 
  Country: None (occurrence: None)
  Receive Date: 20040121
  Receipt Date: 20030402
  Transmission Date: 20041129
  Serious: No
  Sender: FDA-Public Use
  Company Number: US-GLAXOSMITHKLINE-A0403101A

PATIENT

DRUGS (3)
  1. ZIAGEN [Suspect]
     Route: 048
  2. FISH OIL [Concomitant]
     Dosage: 15G PER DAY
  3. BENECOL [Concomitant]
     Dosage: 1G THREE TIMES PER DAY

REACTIONS (2)
  - PHARMACEUTICAL PRODUCT COMPLAINT [None]
  - STOOL ANALYSIS ABNORMAL [None]
